FAERS Safety Report 17333070 (Version 1)
Quarter: 2020Q1

REPORT INFORMATION
  Report Type: Spontaneous
  Country: CA (occurrence: CA)
  Receive Date: 20200128
  Receipt Date: 20200128
  Transmission Date: 20200409
  Serious: No
  Sender: FDA-Public Use
  Company Number: CA-ALKEM LABORATORIES LIMITED-CA-ALKEM-2019-09601

PATIENT
  Age: 15 Year
  Sex: Male

DRUGS (2)
  1. ST. JOHN?S WORT [Suspect]
     Active Substance: ST. JOHN^S WORT
     Dosage: UNK
     Route: 065
  2. METHYLPHENIDATE HYDROCHLORIDE. [Suspect]
     Active Substance: METHYLPHENIDATE HYDROCHLORIDE
     Indication: ATTENTION DEFICIT/HYPERACTIVITY DISORDER
     Dosage: 20 MILLIGRAM, QD
     Route: 048
     Dates: start: 1998

REACTIONS (6)
  - Disturbance in attention [Unknown]
  - Agitation [Unknown]
  - Depression [Unknown]
  - Drug interaction [Unknown]
  - Crying [Unknown]
  - Aggression [Unknown]
